FAERS Safety Report 8990086 (Version 1)
Quarter: 2012Q4

REPORT INFORMATION
  Report Type: 
  Country: US (occurrence: US)
  Receive Date: 20121228
  Receipt Date: 20121228
  Transmission Date: 20130627
  Serious: No
  Sender: FDA-Public Use
  Company Number: US-PFIZER INC-2012331932

PATIENT
  Age: 69 Year
  Sex: Male
  Weight: 81.63 kg

DRUGS (4)
  1. PRISTIQ [Suspect]
     Indication: DEPRESSION
     Dosage: 50 mg, 1x/day
     Route: 048
     Dates: start: 2010, end: 2010
  2. PRISTIQ [Suspect]
     Dosage: 100 mg, 1x/day
     Route: 048
     Dates: start: 2010, end: 2010
  3. PRISTIQ [Suspect]
     Dosage: 75 mg, 1x/day
     Dates: start: 2010
  4. COREG [Concomitant]
     Indication: BLOOD PRESSURE HIGH
     Dosage: UNK

REACTIONS (3)
  - Drug effect incomplete [Unknown]
  - Agitation [Unknown]
  - Psychomotor hyperactivity [Unknown]
